FAERS Safety Report 22051214 (Version 1)
Quarter: 2023Q1

REPORT INFORMATION
  Report Type: Spontaneous
  Country: CN (occurrence: CN)
  Receive Date: 20230301
  Receipt Date: 20230301
  Transmission Date: 20230417
  Serious: Yes (Other)
  Sender: FDA-Public Use
  Company Number: CN-ELI_LILLY_AND_COMPANY-CN202302010191

PATIENT
  Age: 60 Year
  Sex: Male

DRUGS (29)
  1. PEMETREXED [Suspect]
     Active Substance: PEMETREXED
     Indication: Non-small cell lung cancer
     Dosage: 900 MG, UNKNOWN
     Route: 065
     Dates: start: 20210413
  2. PEMETREXED [Suspect]
     Active Substance: PEMETREXED
     Dosage: 900 MG, UNKNOWN
     Route: 065
     Dates: start: 20210512
  3. PEMETREXED [Suspect]
     Active Substance: PEMETREXED
     Dosage: 900 MG, UNKNOWN
     Route: 065
     Dates: start: 20210602
  4. PEMETREXED [Suspect]
     Active Substance: PEMETREXED
     Dosage: 900 MG, UNKNOWN
     Route: 065
     Dates: start: 20210623
  5. PEMETREXED [Suspect]
     Active Substance: PEMETREXED
     Dosage: 900 MG, UNKNOWN
     Route: 065
     Dates: start: 20210713
  6. PEMETREXED [Suspect]
     Active Substance: PEMETREXED
     Dosage: 900 MG, UNKNOWN
     Route: 065
     Dates: start: 20210803
  7. PEMETREXED [Suspect]
     Active Substance: PEMETREXED
     Dosage: 900 MG, UNKNOWN
     Route: 065
     Dates: start: 20210823
  8. PEMETREXED [Suspect]
     Active Substance: PEMETREXED
     Dosage: 900 MG, UNKNOWN
     Route: 065
     Dates: start: 20210913
  9. PEMETREXED [Suspect]
     Active Substance: PEMETREXED
     Dosage: 900 MG, UNKNOWN
     Route: 065
     Dates: start: 20211008
  10. PEMETREXED [Suspect]
     Active Substance: PEMETREXED
     Dosage: 900 MG, UNKNOWN
     Route: 065
     Dates: start: 20211028
  11. PEMETREXED [Suspect]
     Active Substance: PEMETREXED
     Dosage: 900 MG, UNKNOWN
     Route: 065
     Dates: start: 20211118
  12. PEMETREXED [Suspect]
     Active Substance: PEMETREXED
     Dosage: 900 MG, UNKNOWN
     Route: 065
     Dates: start: 20211209
  13. PEMETREXED [Suspect]
     Active Substance: PEMETREXED
     Dosage: 900 MG, UNKNOWN
     Route: 065
     Dates: start: 20211230
  14. PEMETREXED [Suspect]
     Active Substance: PEMETREXED
     Dosage: 900 MG, UNKNOWN
     Route: 065
     Dates: start: 20220209
  15. PEMETREXED [Suspect]
     Active Substance: PEMETREXED
     Dosage: 750 MG, UNKNOWN
     Route: 065
     Dates: start: 20220427
  16. PEMETREXED [Suspect]
     Active Substance: PEMETREXED
     Dosage: 750 MG, UNKNOWN
     Route: 065
     Dates: start: 20220517
  17. PEMETREXED [Suspect]
     Active Substance: PEMETREXED
     Dosage: 750 MG, UNKNOWN
     Route: 065
     Dates: start: 20220610
  18. CARBOPLATIN [Suspect]
     Active Substance: CARBOPLATIN
     Indication: Non-small cell lung cancer
     Dosage: 500 MG, UNKNOWN
     Route: 065
     Dates: start: 20210413
  19. CARBOPLATIN [Suspect]
     Active Substance: CARBOPLATIN
     Dosage: 500 MG, UNKNOWN
     Route: 065
     Dates: start: 20210512
  20. CARBOPLATIN [Suspect]
     Active Substance: CARBOPLATIN
     Dosage: 500 MG, UNKNOWN
     Route: 065
     Dates: start: 20210602
  21. CARBOPLATIN [Suspect]
     Active Substance: CARBOPLATIN
     Dosage: 500 MG, UNKNOWN
     Route: 065
     Dates: start: 20210623
  22. CARBOPLATIN [Suspect]
     Active Substance: CARBOPLATIN
     Dosage: 500 MG, UNKNOWN
     Route: 065
     Dates: start: 20210713
  23. CARBOPLATIN [Suspect]
     Active Substance: CARBOPLATIN
     Dosage: 500 MG, UNKNOWN
     Route: 065
     Dates: start: 20210803
  24. ASPIRIN [Concomitant]
     Active Substance: ASPIRIN
     Indication: Coronary artery disease
     Dosage: 0.1 G, TID
  25. METOPROLOL [Concomitant]
     Active Substance: METOPROLOL
     Indication: Coronary artery disease
     Dosage: 47.5 MG, DAILY
     Route: 048
  26. REPAGLINIDE [Concomitant]
     Active Substance: REPAGLINIDE
     Indication: Diabetes mellitus
     Dosage: 2 MG, BID
  27. METFORMIN [Concomitant]
     Active Substance: METFORMIN HYDROCHLORIDE
     Indication: Diabetes mellitus
     Dosage: 0.5 MG, BID
     Route: 048
  28. METHIMAZOLE [Concomitant]
     Active Substance: METHIMAZOLE
     Indication: Hyperthyroidism
     Dosage: 5 MG, DAILY
  29. FELODIPINE [Concomitant]
     Active Substance: FELODIPINE
     Indication: Hypertension
     Dosage: 5 MG, DAILY
     Route: 048

REACTIONS (9)
  - Liver injury [Recovered/Resolved]
  - Gastrointestinal disorder [Recovered/Resolved]
  - Proteinuria [Recovered/Resolved]
  - Hypothyroidism [Not Recovered/Not Resolved]
  - Blood creatine phosphokinase increased [Recovered/Resolved]
  - Anaemia [Not Recovered/Not Resolved]
  - White blood cell count decreased [Recovered/Resolved]
  - Neutrophil count decreased [Recovered/Resolved]
  - Blood creatinine increased [Not Recovered/Not Resolved]

NARRATIVE: CASE EVENT DATE: 20210401
